FAERS Safety Report 4711775-6 (Version None)
Quarter: 2005Q3

REPORT INFORMATION
  Report Type: 
  Country: None (occurrence: None)
  Receive Date: 20050711
  Receipt Date: 20050711
  Transmission Date: 20060218
  Serious: Yes (Life-Threatening, Hospitalization)
  Sender: FDA-Public Use
  Company Number: None

PATIENT
  Age: 63 Year
  Weight: 55.5656 kg

DRUGS (19)
  1. IMATINIB MESYLATE 100 MG TABLETS - NOVARTIS [Suspect]
     Indication: GLIOBLASTOMA MULTIFORME
     Dosage: 400 MG PO QD
     Route: 048
     Dates: start: 20050606, end: 20050623
  2. HYDROXYUREA [Suspect]
     Indication: GLIOBLASTOMA MULTIFORME
     Dosage: 500 MG BID
     Dates: start: 20050607, end: 20050623
  3. RAD001 2.5MG [Suspect]
     Indication: GLIOBLASTOMA MULTIFORME
     Dosage: 2.50MG QD
     Dates: start: 20050607, end: 20050623
  4. ACTONEL [Concomitant]
  5. KLOR-CON [Concomitant]
  6. LEVOXYL [Concomitant]
  7. NEURONTIN [Concomitant]
  8. CELEBREX [Concomitant]
  9. DECADRON [Concomitant]
  10. MELATONIN [Concomitant]
  11. DIOVAN [Concomitant]
  12. BORAGE OIL [Concomitant]
  13. KRISTIN [Concomitant]
  14. SELENIUM SULFIDE [Concomitant]
  15. MILK THISTLE [Concomitant]
  16. NORVASC [Concomitant]
  17. HYDROXYCHLOROQUINE SULFATE [Concomitant]
  18. LEVOXYL [Concomitant]
  19. ZOLOFT [Concomitant]

REACTIONS (10)
  - ABDOMINAL PAIN [None]
  - ARTHRALGIA [None]
  - CULTURE WOUND POSITIVE [None]
  - DIVERTICULAR PERFORATION [None]
  - DYSURIA [None]
  - FALL [None]
  - FEMUR FRACTURE [None]
  - LARGE INTESTINE PERFORATION [None]
  - OLIGURIA [None]
  - THROMBOCYTOPENIA [None]
